FAERS Safety Report 5642891-2 (Version None)
Quarter: 2008Q1

REPORT INFORMATION
  Report Type: 
  Country: None (occurrence: None)
  Receive Date: 20080228
  Receipt Date: 20080219
  Transmission Date: 20080703
  Serious: Yes (Other)
  Sender: FDA-Public Use
  Company Number: US-JNJFOC-20080205193

PATIENT
  Sex: Female
  Weight: 97.52 kg

DRUGS (1)
  1. FENTANYL [Suspect]
     Indication: BACK PAIN
     Route: 062

REACTIONS (8)
  - BALANCE DISORDER [None]
  - FALL [None]
  - FEELING ABNORMAL [None]
  - HYPOAESTHESIA [None]
  - PAIN IN EXTREMITY [None]
  - SOMNOLENCE [None]
  - THINKING ABNORMAL [None]
  - UPPER LIMB FRACTURE [None]
